FAERS Safety Report 8045547-4 (Version None)
Quarter: 2012Q1

REPORT INFORMATION
  Report Type: 
  Country: None (occurrence: None)
  Receive Date: 20120113
  Receipt Date: 20120109
  Transmission Date: 20120608
  Serious: Yes (Life-Threatening, Hospitalization)
  Sender: FDA-Public Use
  Company Number: US-CELGENEUS-163-21660-12010881

PATIENT
  Age: 52 Year
  Sex: Female

DRUGS (5)
  1. ABRAXANE [Suspect]
     Indication: BREAST CANCER
     Dosage: 80 MILLIGRAM/SQ. METER
     Route: 041
     Dates: start: 20110101, end: 20110421
  2. CYCLOPHOSPHAMIDE [Concomitant]
     Indication: BREAST CANCER
     Dosage: 600 MILLIGRAM/SQ. METER
     Route: 041
     Dates: start: 20110310, end: 20110421
  3. BEVACIZUMAB [Suspect]
     Indication: BREAST CANCER
     Route: 041
     Dates: start: 20110310, end: 20110621
  4. PEGFILGRASTIM [Suspect]
     Indication: BREAST CANCER
     Dosage: 6 MILLIGRAM
     Route: 058
     Dates: start: 20110101, end: 20110422
  5. DOXORUBICIN HCL [Suspect]
     Indication: BREAST CANCER
     Dosage: 60 MILLIGRAM/SQ. METER
     Route: 041
     Dates: start: 20110310, end: 20110421

REACTIONS (1)
  - HAEMOGLOBIN DECREASED [None]
